FAERS Safety Report 7929549-1 (Version None)
Quarter: 2011Q4

REPORT INFORMATION
  Report Type: 
  Country: None (occurrence: None)
  Receive Date: 20111121
  Receipt Date: 20111111
  Transmission Date: 20120403
  Serious: Yes (Other)
  Sender: FDA-Public Use
  Company Number: CO-JNJFOC-20111105513

PATIENT
  Age: 65 Year
  Sex: Female

DRUGS (6)
  1. OMEPRAZOLE [Concomitant]
     Route: 065
  2. METHOTREXATE [Concomitant]
     Route: 065
  3. REMICADE [Suspect]
     Indication: RHEUMATOID ARTHRITIS
     Route: 042
     Dates: start: 20090504
  4. LEVOTHYROXINE SODIUM [Concomitant]
     Route: 065
  5. REMICADE [Suspect]
     Route: 042
     Dates: start: 20111101
  6. CALCIUM [Concomitant]
     Route: 065

REACTIONS (5)
  - INFUSION RELATED REACTION [None]
  - FLUSHING [None]
  - RESPIRATORY DISTRESS [None]
  - ABDOMINAL PAIN UPPER [None]
  - DIZZINESS [None]
